FAERS Safety Report 8606758 (Version 4)
Quarter: 2014Q1

REPORT INFORMATION
  Report Type: Spontaneous
  Country: US (occurrence: US)
  Receive Date: 20120611
  Receipt Date: 20140124
  Transmission Date: 20141002
  Serious: Yes (Disabling)
  Sender: FDA-Public Use
  Company Number: US-ASTRAZENECA-2012SE35420

PATIENT
  Age: 515 Month
  Sex: Female
  Weight: 63.5 kg

DRUGS (31)
  1. NEXIUM [Suspect]
     Indication: GASTROOESOPHAGEAL REFLUX DISEASE
     Dosage: ONE DAILY
     Route: 048
     Dates: start: 2006, end: 2012
  2. NEXIUM [Suspect]
     Indication: GASTROOESOPHAGEAL REFLUX DISEASE
     Route: 048
     Dates: start: 20100409
  3. NEXIUM [Suspect]
     Indication: GASTROOESOPHAGEAL REFLUX DISEASE
     Route: 048
     Dates: start: 20100805
  4. PRILOSEC [Suspect]
     Route: 048
  5. PRILOSEC [Suspect]
     Route: 048
     Dates: start: 20090108
  6. PRILOSEC [Suspect]
     Route: 048
     Dates: start: 20111030
  7. KLONOPIN [Concomitant]
     Dates: start: 20100805
  8. ULTRAM [Concomitant]
     Dates: start: 20100805
  9. NAPROXEN [Concomitant]
     Dates: start: 20100805
  10. MOBIC [Concomitant]
     Dates: start: 20100805
  11. PROMETHAZINE [Concomitant]
     Dates: start: 20100409
  12. ZOLPIDEM [Concomitant]
     Dates: start: 20080214
  13. CARISOPRODOL [Concomitant]
     Dates: start: 20100212
  14. PAROXETINE [Concomitant]
     Dates: start: 20080912
  15. METHYLPREDNISOLONE [Concomitant]
     Dates: start: 20090122
  16. SEROQUEL [Concomitant]
     Dates: start: 20081223
  17. PREDNISONE [Concomitant]
     Dates: start: 20081107
  18. ABILIFY [Concomitant]
     Dates: start: 20080214
  19. LORATADINE [Concomitant]
     Dates: start: 20080108
  20. DIAZEPAM [Concomitant]
     Dates: start: 20080111
  21. GABAPENTIN [Concomitant]
     Dates: start: 20080102
  22. LITHIUM [Concomitant]
     Dates: start: 20080214
  23. SERTRALINE [Concomitant]
     Dates: start: 20080214
  24. CYCLOBENZAPRINE [Concomitant]
     Dates: start: 20080422
  25. PHENTERMINE [Concomitant]
     Dates: start: 20080606
  26. ACIPHEX [Concomitant]
     Dates: start: 20081108
  27. FUROSEMIDE [Concomitant]
     Dates: start: 20081117
  28. PIROXICAM [Concomitant]
     Dates: start: 20090309
  29. LORAZEPAM [Concomitant]
     Dates: start: 20090810
  30. SUMATRIPTAN [Concomitant]
     Dates: start: 20091215
  31. ZONISAMIDE [Concomitant]
     Dates: start: 20100119

REACTIONS (11)
  - Bone pain [Unknown]
  - Osteoporosis [Unknown]
  - Multiple fractures [Unknown]
  - Ankle fracture [Unknown]
  - Lower limb fracture [Unknown]
  - Arthropathy [Unknown]
  - Hand fracture [Unknown]
  - Fractured coccyx [Unknown]
  - Fibula fracture [Unknown]
  - Fall [Unknown]
  - Osteopenia [Unknown]
